FAERS Safety Report 6404439-4 (Version None)
Quarter: 2009Q4

REPORT INFORMATION
  Report Type: 
  Country: None (occurrence: None)
  Receive Date: 20091016
  Receipt Date: 20090828
  Transmission Date: 20100525
  Serious: No
  Sender: FDA-Public Use
  Company Number: US-ALEXION-A200900698

PATIENT
  Sex: Male

DRUGS (3)
  1. SOLIRIS [Suspect]
     Indication: PAROXYSMAL NOCTURNAL HAEMOGLOBINURIA
     Dosage: 600 MG QW FOR 4 WEEKS
     Route: 042
     Dates: start: 20090318, end: 20090408
  2. SOLIRIS [Suspect]
     Dosage: 600 MG QW FOR 4 WEEKS
     Route: 042
     Dates: start: 20090507, end: 20090501
  3. SOLIRIS [Suspect]
     Dosage: 900 MG,Q2W
     Route: 042
     Dates: start: 20090601

REACTIONS (1)
  - HEADACHE [None]
